FAERS Safety Report 24063949 (Version 2)
Quarter: 2024Q3

REPORT INFORMATION
  Report Type: Spontaneous
  Country: ES (occurrence: ES)
  Receive Date: 20240709
  Receipt Date: 20240715
  Transmission Date: 20241016
  Serious: Yes (Other)
  Sender: ALCON
  Company Number: ES-Santen Oy-2024-ESP-006664

PATIENT

DRUGS (1)
  1. LATANOPROST\NETARSUDIL MESYLATE [Suspect]
     Active Substance: LATANOPROST\NETARSUDIL MESYLATE
     Indication: Ocular hypertension
     Dosage: AS PER LABEL, Q2W
     Route: 047

REACTIONS (1)
  - Visual field defect [Not Recovered/Not Resolved]
